FAERS Safety Report 12324809 (Version 2)
Quarter: 2016Q3

REPORT INFORMATION
  Report Type: Spontaneous
  Country: DE (occurrence: DE)
  Receive Date: 20160502
  Receipt Date: 20160701
  Transmission Date: 20161109
  Serious: Yes (Death, Hospitalization)
  Sender: FDA-Public Use
  Company Number: PHHY2016DE059776

PATIENT
  Age: 79 Year
  Sex: Male
  Weight: 105 kg

DRUGS (6)
  1. AQUAPHOR [Concomitant]
     Active Substance: PETROLATUM
     Indication: CARDIAC FAILURE
     Dosage: 10 MG, UNK
     Route: 065
     Dates: start: 20151026
  2. AMIODARON//AMIODARONE [Concomitant]
     Indication: VENTRICULAR ARRHYTHMIA
     Dosage: 200 MG, UNK
     Route: 065
  3. TORASEMID [Concomitant]
     Active Substance: TORSEMIDE
     Indication: CARDIAC FAILURE
     Dosage: 40 MG, UNK
     Route: 065
  4. ENTRESTO [Suspect]
     Active Substance: SACUBITRIL\VALSARTAN
     Indication: CARDIAC FAILURE
     Dosage: 50 MG, BID
     Route: 065
     Dates: start: 20160303, end: 20160309
  5. MARCUMAR [Concomitant]
     Active Substance: PHENPROCOUMON
     Indication: ATRIAL FIBRILLATION
     Dosage: (ACCORDING TO INR)
     Route: 065
  6. AQUAPHOR [Concomitant]
     Active Substance: PETROLATUM
     Indication: RENAL FAILURE

REACTIONS (2)
  - Cardiac failure [Fatal]
  - Rash [Recovering/Resolving]

NARRATIVE: CASE EVENT DATE: 20160305
